FAERS Safety Report 7572908-X (Version None)
Quarter: 2011Q2

REPORT INFORMATION
  Report Type: 
  Country: None (occurrence: None)
  Receive Date: 20110627
  Receipt Date: 20110614
  Transmission Date: 20111010
  Serious: Yes (Death, Hospitalization)
  Sender: FDA-Public Use
  Company Number: US-ELI_LILLY_AND_COMPANY-US201104005466

PATIENT
  Sex: Female

DRUGS (9)
  1. HYDROXYUREA [Concomitant]
     Dosage: 500 MG, UNK
  2. CALTRATE + D [Concomitant]
  3. NEURONTIN [Concomitant]
     Dosage: 300 MG, UNK
  4. FOSAMAX [Concomitant]
     Dosage: 70 MG, WEEKLY (1/W)
  5. ASPIRIN [Concomitant]
     Dosage: 8 MG, UNK
  6. KEPPRA [Concomitant]
     Dosage: 250 MG, UNK
  7. OXYBUTIN [Concomitant]
     Dosage: 5 MG, UNK
  8. ZYPREXA [Suspect]
     Indication: SCHIZOPHRENIA
     Dosage: 15 MG, QD
     Dates: start: 20101223
  9. KLONOPIN [Concomitant]
     Indication: ANXIETY
     Dosage: 1 G, PRN

REACTIONS (3)
  - DEATH [None]
  - IMMUNOSUPPRESSION [None]
  - PNEUMONIA [None]
